FAERS Safety Report 8170720 (Version 2)
Quarter: 2012Q4

REPORT INFORMATION
  Report Type: 
  Country: US (occurrence: US)
  Receive Date: 20111006
  Receipt Date: 20120910
  Transmission Date: 20130627
  Serious: Yes (Hospitalization)
  Sender: FDA-Public Use
  Company Number: US-BAYER-2011-091034

PATIENT
  Age: 20 Year
  Sex: Female
  Weight: 86.17 kg

DRUGS (5)
  1. YAZ [Suspect]
     Indication: MENORRHAGIA
     Dosage: UNK
     Dates: start: 200905, end: 20090816
  2. YAZ [Suspect]
     Indication: MENSTRUATION IRREGULAR
  3. ZOFRAN [Concomitant]
  4. FERROUS SULFATE [Concomitant]
  5. IBUPROFEN [Concomitant]
     Dosage: UNK
     Dates: start: 20090527

REACTIONS (9)
  - Pulmonary embolism [None]
  - Fear [None]
  - Injury [None]
  - Pain [None]
  - Emotional distress [None]
  - Anxiety [None]
  - Psychological trauma [None]
  - Chest pain [None]
  - Dyspnoea [None]
